FAERS Safety Report 15411516 (Version 2)
Quarter: 2018Q4

REPORT INFORMATION
  Report Type: Report from Study
  Country: None (occurrence: US)
  Receive Date: 20180921
  Receipt Date: 20181031
  Transmission Date: 20190204
  Serious: Yes (Other)
  Sender: FDA-Public Use
  Company Number: US-ABBVIE-18K-163-2392582-00

PATIENT
  Sex: Female

DRUGS (4)
  1. HUMIRA [Interacting]
     Active Substance: ADALIMUMAB
     Indication: PSORIATIC ARTHROPATHY
  2. HUMIRA [Suspect]
     Active Substance: ADALIMUMAB
     Indication: PSORIASIS
     Route: 058
  3. HUMIRA [Interacting]
     Active Substance: ADALIMUMAB
     Indication: PSORIASIS
  4. RABIES VACCINE [Interacting]
     Active Substance: RABIES VACCINE
     Indication: PRODUCT USED FOR UNKNOWN INDICATION
     Route: 065

REACTIONS (15)
  - Injection site pain [Unknown]
  - Eye haemorrhage [Unknown]
  - Cardiac disorder [Unknown]
  - Animal bite [Not Recovered/Not Resolved]
  - Diabetes mellitus [Unknown]
  - Glaucoma [Unknown]
  - Drug interaction [Not Recovered/Not Resolved]
  - Arthralgia [Unknown]
  - Thyroid disorder [Unknown]
  - Blood pressure measurement [Unknown]
  - Neck pain [Unknown]
  - Paraesthesia [Unknown]
  - Drug ineffective [Unknown]
  - Pain in extremity [Unknown]
  - Weight decreased [Unknown]
